FAERS Safety Report 12992160 (Version 2)
Quarter: 2017Q1

REPORT INFORMATION
  Report Type: Spontaneous
  Country: JP (occurrence: JP)
  Receive Date: 20161201
  Receipt Date: 20170203
  Transmission Date: 20170428
  Serious: Yes (Death, Other)
  Sender: FDA-Public Use
  Company Number: JP-GILEAD-2016-0245917

PATIENT
  Sex: Male

DRUGS (5)
  1. HEPSERA [Suspect]
     Active Substance: ADEFOVIR DIPIVOXIL
     Dosage: 10 MG, QD
     Route: 048
     Dates: start: 201112
  2. HEPSERA [Suspect]
     Active Substance: ADEFOVIR DIPIVOXIL
     Indication: CHRONIC HEPATITIS B
     Dosage: 10 MG, QOD
     Route: 048
  3. HEPSERA [Suspect]
     Active Substance: ADEFOVIR DIPIVOXIL
     Dosage: 10 MG, QOD
     Route: 048
     Dates: start: 201506
  4. ZEFIX [Suspect]
     Active Substance: LAMIVUDINE
     Dosage: 50 MG, QD
     Dates: start: 201506
  5. ZEFIX [Suspect]
     Active Substance: LAMIVUDINE
     Indication: CHRONIC HEPATITIS B
     Dosage: 100 MG, QD
     Route: 048
     Dates: start: 200511

REACTIONS (2)
  - Hepatocellular carcinoma [Fatal]
  - Renal impairment [Recovering/Resolving]

NARRATIVE: CASE EVENT DATE: 201506
